FAERS Safety Report 8059815-3 (Version None)
Quarter: 2012Q1

REPORT INFORMATION
  Report Type: 
  Country: None (occurrence: None)
  Receive Date: 20120120
  Receipt Date: 20120112
  Transmission Date: 20120608
  Serious: Yes (Other)
  Sender: FDA-Public Use
  Company Number: IE-NAPPMUNDI-GBR-2011-0008408

PATIENT
  Sex: Female

DRUGS (2)
  1. BUTRANS [Suspect]
     Indication: PRODUCT USED FOR UNKNOWN INDICATION
     Dosage: 5 MCG, Q1H
     Route: 062
  2. FLOXACILLIN SODIUM [Interacting]

REACTIONS (3)
  - INCOHERENT [None]
  - DRUG INTERACTION [None]
  - CONFUSIONAL STATE [None]
